FAERS Safety Report 18068657 (Version 1)
Quarter: 2020Q3

REPORT INFORMATION
  Report Type: Spontaneous
  Country: DE (occurrence: DE)
  Receive Date: 20200724
  Receipt Date: 20200724
  Transmission Date: 20201103
  Serious: Yes (Other)
  Sender: FDA-Public Use
  Company Number: NVSC2020DE208093

PATIENT
  Sex: Female
  Weight: 90 kg

DRUGS (2)
  1. L?THYROX HEXAL 75 MIKROGRAMM [Suspect]
     Active Substance: LEVOTHYROXINE SODIUM
     Indication: PRODUCT USED FOR UNKNOWN INDICATION
     Dosage: 1 DF, QD
     Route: 065
     Dates: start: 201807
  2. AMINEURIN 50 MG FILMTABLETTEN [Suspect]
     Active Substance: AMITRIPTYLINE HYDROCHLORIDE
     Indication: PRODUCT USED FOR UNKNOWN INDICATION
     Dosage: 1 DF, QD
     Route: 065
     Dates: start: 201907

REACTIONS (2)
  - Nausea [Unknown]
  - Deafness [Unknown]

NARRATIVE: CASE EVENT DATE: 20200719
